FAERS Safety Report 11663652 (Version 3)
Quarter: 2015Q4

REPORT INFORMATION
  Report Type: Spontaneous
  Country: RU (occurrence: RU)
  Receive Date: 20151027
  Receipt Date: 20151201
  Transmission Date: 20160304
  Serious: Yes (Death)
  Sender: FDA-Public Use
  Company Number: PHHY2015RU138477

PATIENT
  Age: 34 Year
  Sex: Female

DRUGS (1)
  1. SANDIMMUN NEORAL [Suspect]
     Active Substance: CYCLOSPORINE
     Indication: MUSCULAR WEAKNESS
     Dosage: 2.5-5 MG/KG, UNK
     Route: 048

REACTIONS (2)
  - Drug ineffective [Fatal]
  - Product use issue [Unknown]
